FAERS Safety Report 25651329 (Version 1)
Quarter: 2025Q3

REPORT INFORMATION
  Report Type: Spontaneous
  Country: IN (occurrence: IN)
  Receive Date: 20250806
  Receipt Date: 20250806
  Transmission Date: 20251020
  Serious: Yes (Death)
  Sender: SANOFI AVENTIS
  Company Number: IN-SA-2025SA212975

PATIENT
  Age: 1 Year
  Sex: Female
  Weight: 7 kg

DRUGS (2)
  1. MYOZYME [Suspect]
     Active Substance: ALGLUCOSIDASE ALFA
     Indication: Glycogen storage disease type II
     Route: 065
     Dates: start: 20250718
  2. FUROSEMIDE [Concomitant]
     Active Substance: FUROSEMIDE
     Indication: Hypertrophic cardiomyopathy
     Dosage: 5 MG, QD
     Route: 048
     Dates: start: 20250130

REACTIONS (2)
  - Glycogen storage disease type II [Fatal]
  - Condition aggravated [Fatal]
